FAERS Safety Report 14269954 (Version 2)
Quarter: 2018Q1

REPORT INFORMATION
  Report Type: Spontaneous
  Country: SE (occurrence: SE)
  Receive Date: 20171211
  Receipt Date: 20180111
  Transmission Date: 20180508
  Serious: Yes (Other)
  Sender: FDA-Public Use
  Company Number: SE-OTSUKA-2016_003127

PATIENT
  Sex: Male

DRUGS (1)
  1. ABILIFY [Suspect]
     Active Substance: ARIPIPRAZOLE
     Indication: DISSOCIATIVE DISORDER
     Dosage: UNK
     Route: 065
     Dates: end: 20070802

REACTIONS (2)
  - Off label use [Unknown]
  - Schizophrenia [Unknown]
